FAERS Safety Report 15143732 (Version 2)
Quarter: 2018Q3

REPORT INFORMATION
  Report Type: Spontaneous
  Country: US (occurrence: US)
  Receive Date: 20180713
  Receipt Date: 20180725
  Transmission Date: 20181010
  Serious: No
  Sender: FDA-Public Use
  Company Number: US-CELGENEUS-USA-20180702875

PATIENT
  Age: 56 Year
  Sex: Female

DRUGS (2)
  1. OTEZLA [Suspect]
     Active Substance: APREMILAST
     Indication: PSORIATIC ARTHROPATHY
     Dosage: 60 MILLIGRAM
     Route: 048
     Dates: start: 20180314, end: 20180628
  2. OTEZLA [Suspect]
     Active Substance: APREMILAST
     Indication: PSORIASIS

REACTIONS (1)
  - Depression [Not Recovered/Not Resolved]

NARRATIVE: CASE EVENT DATE: 201807
